FAERS Safety Report 23378698 (Version 3)
Quarter: 2024Q2

REPORT INFORMATION
  Report Type: Report from Study
  Country: US (occurrence: US)
  Receive Date: 20240108
  Receipt Date: 20240506
  Transmission Date: 20240716
  Serious: Yes (Other)
  Sender: FDA-Public Use
  Company Number: US-ABBVIE-5574562

PATIENT
  Age: 62 Year
  Sex: Female

DRUGS (2)
  1. SKYRIZI [Suspect]
     Active Substance: RISANKIZUMAB-RZAA
     Indication: Crohn^s disease
     Route: 058
     Dates: start: 20230109
  2. SKYRIZI [Suspect]
     Active Substance: RISANKIZUMAB-RZAA
     Route: 058

REACTIONS (21)
  - Ileostomy [Unknown]
  - Fistula [Not Recovered/Not Resolved]
  - Renal impairment [Unknown]
  - Stoma site pain [Unknown]
  - Malaise [Recovering/Resolving]
  - Stoma site discharge [Unknown]
  - Stoma complication [Unknown]
  - Gastrointestinal inflammation [Not Recovered/Not Resolved]
  - Personality change [Not Recovered/Not Resolved]
  - Fatigue [Unknown]
  - Stoma site hypergranulation [Not Recovered/Not Resolved]
  - Paranasal sinus hypersecretion [Not Recovered/Not Resolved]
  - Gastrointestinal disorder [Unknown]
  - Balance disorder [Not Recovered/Not Resolved]
  - Hypersomnia [Unknown]
  - Middle ear effusion [Not Recovered/Not Resolved]
  - Dizziness [Not Recovered/Not Resolved]
  - Fall [Not Recovered/Not Resolved]
  - Vertigo [Unknown]
  - Gastrointestinal wall thickening [Not Recovered/Not Resolved]
  - Gastrointestinal disorder [Not Recovered/Not Resolved]

NARRATIVE: CASE EVENT DATE: 20231231
